FAERS Safety Report 23297257 (Version 1)
Quarter: 2023Q4

REPORT INFORMATION
  Report Type: Spontaneous
  Country: US (occurrence: None)
  Receive Date: 20231214
  Receipt Date: 20231214
  Transmission Date: 20240110
  Serious: Yes (Other)
  Sender: FDA-Public Use
  Company Number: None

PATIENT
  Age: 46 Year
  Sex: Female

DRUGS (6)
  1. STELARA [Suspect]
     Active Substance: USTEKINUMAB
     Indication: Psoriasis
     Dosage: OTHER FREQUENCY : Q 4 WEEKS;?
     Route: 058
     Dates: start: 20230811
  2. clobetasol 0.05% Foam [Concomitant]
     Dates: start: 20230809
  3. clobetasol prop 0.05% oint [Concomitant]
     Dates: start: 20230809
  4. flonase allgy rel 50mcg na sp-120sp [Concomitant]
     Dates: start: 20230809
  5. estradiol valerate 10mg/ml inj 5ml [Concomitant]
     Dates: start: 20230809
  6. FUROSEMIDE [Concomitant]
     Active Substance: FUROSEMIDE
     Dates: start: 20230809

REACTIONS (1)
  - Tremor [None]

NARRATIVE: CASE EVENT DATE: 20231214
